FAERS Safety Report 7533206-3 (Version None)
Quarter: 2011Q2

REPORT INFORMATION
  Report Type: 
  Country: None (occurrence: None)
  Receive Date: 20110608
  Receipt Date: 20020729
  Transmission Date: 20111010
  Serious: Yes (Death)
  Sender: FDA-Public Use
  Company Number: PHBS2002CA07106

PATIENT
  Sex: Female

DRUGS (2)
  1. CLOZAPINE [Suspect]
     Indication: SCHIZOPHRENIA, PARANOID TYPE
     Dosage: 450 MG, QHS
     Route: 048
     Dates: start: 20010213
  2. COMBIVENT [Concomitant]
     Dosage: 2 DF, QID

REACTIONS (1)
  - MYOCARDIAL INFARCTION [None]
